FAERS Safety Report 23027917 (Version 1)
Quarter: 2023Q4

REPORT INFORMATION
  Report Type: Spontaneous
  Country: US (occurrence: US)
  Receive Date: 20231004
  Receipt Date: 20231004
  Transmission Date: 20240109
  Serious: Yes (Death)
  Sender: FDA-Public Use
  Company Number: US-PFIZER INC-PV202300164870

PATIENT
  Age: 41 Year
  Sex: Male

DRUGS (2)
  1. RITUXIMAB [Suspect]
     Active Substance: RITUXIMAB
     Indication: Anti-neutrophil cytoplasmic antibody positive vasculitis
     Dosage: UNK , (3 DOSES)
  2. .ALPHA.1-PROTEINASE INHIBITOR HUMAN [Suspect]
     Active Substance: .ALPHA.1-PROTEINASE INHIBITOR HUMAN
     Indication: Alpha-1 antitrypsin deficiency
     Dosage: 60 MG/KG
     Route: 042

REACTIONS (5)
  - Renal impairment [Fatal]
  - Hepatic function abnormal [Fatal]
  - Multiple organ dysfunction syndrome [Fatal]
  - Pulmonary alveolar haemorrhage [Fatal]
  - Off label use [Unknown]
